FAERS Safety Report 8824808 (Version 2)
Quarter: 2012Q4

REPORT INFORMATION
  Report Type: 
  Country: US (occurrence: US)
  Receive Date: 20121004
  Receipt Date: 20121011
  Transmission Date: 20130627
  Serious: Yes (Hospitalization)
  Sender: FDA-Public Use
  Company Number: US-BAYER-2012-096920

PATIENT
  Age: 57 Year
  Sex: Female
  Weight: 95.24 kg

DRUGS (7)
  1. SORAFENIB (RAF KINASE INHIBITOR) [Suspect]
     Indication: HEPATIC NEOPLASM MALIGNANT
     Dosage: 400 mg, BID
     Dates: start: 20120901, end: 20120920
  2. LEVOTHYROXIN [Concomitant]
     Dosage: 100 ?g, UNK
  3. LACTULOSE [Concomitant]
  4. OMEGA 3 [FISH OIL] [Concomitant]
  5. VITAMIN B [Concomitant]
  6. MULTIVITAMIN [Concomitant]
  7. CALCIUM [Concomitant]

REACTIONS (10)
  - Gastrointestinal haemorrhage [Recovering/Resolving]
  - Frequent bowel movements [None]
  - Faeces discoloured [None]
  - Muscle spasms [Not Recovered/Not Resolved]
  - Pyrexia [Unknown]
  - Dizziness [Unknown]
  - Abdominal distension [None]
  - Dyspnoea [None]
  - Vomiting [Recovering/Resolving]
  - Asthenia [None]
